FAERS Safety Report 5205008-4 (Version None)
Quarter: 2007Q1

REPORT INFORMATION
  Report Type: 
  Country: None (occurrence: None)
  Receive Date: 20070110
  Receipt Date: 20061026
  Transmission Date: 20070707
  Serious: No
  Sender: FDA-Public Use
  Company Number: US-BRISTOL-MYERS SQUIBB COMPANY-13525712

PATIENT
  Age: 60 Year
  Sex: Female
  Weight: 61 kg

DRUGS (6)
  1. ABILIFY [Suspect]
     Indication: BIPOLAR DISORDER
     Dosage: DOSE CUT IN HALF TO 5 MG TO TX SX OF SAE
     Dates: start: 20060401
  2. ABILIFY [Suspect]
     Indication: SCHIZOAFFECTIVE DISORDER
     Dosage: DOSE CUT IN HALF TO 5 MG TO TX SX OF SAE
     Dates: start: 20060401
  3. CELEXA [Concomitant]
  4. ATIVAN [Concomitant]
  5. TAMOXIFEN CITRATE [Concomitant]
  6. BENZTROPINE MESYLATE [Concomitant]

REACTIONS (1)
  - EXCESSIVE EYE BLINKING [None]
